FAERS Safety Report 5293257-9 (Version None)
Quarter: 2007Q2

REPORT INFORMATION
  Report Type: 
  Country: None (occurrence: None)
  Receive Date: 20070411
  Receipt Date: 20070329
  Transmission Date: 20071010
  Serious: Yes (Death, Hospitalization, Other)
  Sender: FDA-Public Use
  Company Number: US-GENENTECH-234641

PATIENT
  Sex: Male
  Weight: 72.109 kg

DRUGS (4)
  1. AVASTIN [Suspect]
     Indication: COLORECTAL CANCER
     Dosage: 540 MG, UNK
     Route: 042
     Dates: start: 20061116
  2. OXALIPLATIN [Suspect]
     Indication: COLON CANCER RECURRENT
     Dosage: 235 MG, UNK
     Route: 048
     Dates: start: 20061116
  3. CAPECITABINE [Suspect]
     Indication: COLON CANCER RECURRENT
     Route: 048
     Dates: start: 20061116
  4. ZOCOR [Suspect]
     Indication: DRUG USE FOR UNKNOWN INDICATION
     Dates: start: 20030115

REACTIONS (5)
  - DIARRHOEA [None]
  - HEPATITIS [None]
  - INTESTINAL ISCHAEMIA [None]
  - RHABDOMYOLYSIS [None]
  - SHOCK [None]
